FAERS Safety Report 7403495-4 (Version None)
Quarter: 2011Q1

REPORT INFORMATION
  Report Type: 
  Country: None (occurrence: None)
  Receive Date: 20110330
  Receipt Date: 20110118
  Transmission Date: 20110831
  Serious: Yes (Death)
  Sender: FDA-Public Use
  Company Number: OTH-SPN-2011001

PATIENT
  Sex: Female

DRUGS (7)
  1. ENALAPRIL MALEATE [Concomitant]
  2. LEVOCARITINE [Concomitant]
  3. ASPIRIN [Concomitant]
  4. FOLIC ACID [Concomitant]
  5. KEPPRA [Concomitant]
  6. PEPCID [Concomitant]
  7. CYSTADANE (BETAINE ANHYDROUS FOR ORAL SOLUTION) [Suspect]
     Indication: HOMOCYSTINURIA
     Dosage: 1, 300 G EVERY DAY

REACTIONS (2)
  - GENERAL PHYSICAL HEALTH DETERIORATION [None]
  - CEREBROVASCULAR ACCIDENT [None]
